FAERS Safety Report 5904723-4 (Version None)
Quarter: 2008Q3

REPORT INFORMATION
  Report Type: 
  Country: None (occurrence: None)
  Receive Date: 20080909
  Receipt Date: 20080503
  Transmission Date: 20090109
  Serious: Yes (Death)
  Sender: FDA-Public Use
  Company Number: 163-20785-08050215

PATIENT
  Age: 66 Year
  Sex: Female
  Weight: 62 kg

DRUGS (4)
  1. THALOMID [Suspect]
     Indication: UTERINE CANCER
     Dosage: 200 MG, QHS, ESCALATED 200MG Q2W MAX 1000MG/DAY, ORAL
     Route: 048
     Dates: start: 20070817, end: 20071011
  2. TPN (TPN) [Concomitant]
  3. PAIN MEDICATION (ANALGESICS) [Concomitant]
  4. BLOOD TRANSFUSION (BLOOD, WHOLE) [Concomitant]

REACTIONS (2)
  - DISEASE PROGRESSION [None]
  - MULTI-ORGAN FAILURE [None]
